FAERS Safety Report 5420422-X (Version None)
Quarter: 2007Q3

REPORT INFORMATION
  Report Type: 
  Country: None (occurrence: None)
  Receive Date: 20070816
  Receipt Date: 20070801
  Transmission Date: 20080115
  Serious: Yes (Congenital Anomaly)
  Sender: FDA-Public Use
  Company Number: 2007BI016301

PATIENT
  Sex: Male
  Weight: 2.3814 kg

DRUGS (1)
  1. AVONEX [Suspect]
     Indication: MULTIPLE SCLEROSIS
     Dosage: 30 UG;QW; TRPL
     Route: 064
     Dates: start: 20010101, end: 20061007

REACTIONS (4)
  - ANKYLOGLOSSIA CONGENITAL [None]
  - DRUG EXPOSURE BEFORE PREGNANCY [None]
  - HYPOSPADIAS [None]
  - PREGNANCY [None]
